FAERS Safety Report 24994856 (Version 1)
Quarter: 2025Q1

REPORT INFORMATION
  Report Type: Spontaneous
  Country: US (occurrence: None)
  Receive Date: 20250220
  Receipt Date: 20250220
  Transmission Date: 20250409
  Serious: Yes (Death)
  Sender: FDA-CTU
  Company Number: None

PATIENT
  Age: 65 Year
  Sex: Male

DRUGS (4)
  1. COLLAGENASE SANTYL [Suspect]
     Active Substance: COLLAGENASE CLOSTRIDIUM HISTOLYTICUM
     Indication: Wound
     Route: 061
     Dates: start: 20241212, end: 20250204
  2. ALBUTEROL HFA INH (200 PUFFS) 6.7GM [Concomitant]
  3. DIAZEPAM 2MG TABLETS [Concomitant]
  4. OXYCODONE 5MG IMMEDIATE REL TABS [Concomitant]

REACTIONS (1)
  - Death [None]

NARRATIVE: CASE EVENT DATE: 20250202
